FAERS Safety Report 8880761 (Version 1)
Quarter: 2012Q4

REPORT INFORMATION
  Report Type: Report from Study
  Country: US (occurrence: US)
  Receive Date: 20121101
  Receipt Date: 20121101
  Transmission Date: 20130627
  Serious: Yes (Hospitalization, Other)
  Sender: FDA-Public Use
  Company Number: US-JNJFOC-20121016689

PATIENT
  Sex: Male
  Weight: 104.33 kg

DRUGS (3)
  1. REMICADE [Suspect]
     Indication: CROHN^S DISEASE
     Route: 042
  2. REMICADE [Suspect]
     Indication: CROHN^S DISEASE
     Dosage: started in ^1997 or 1998^
     Route: 042
  3. REMICADE [Suspect]
     Indication: CROHN^S DISEASE
     Dosage: started in ^1997 or 1998^
     Route: 042
     Dates: end: 1998

REACTIONS (4)
  - Organ failure [Recovered/Resolved]
  - Joint injury [Unknown]
  - Tuberculosis [Not Recovered/Not Resolved]
  - Abasia [Unknown]
